FAERS Safety Report 10682826 (Version 3)
Quarter: 2015Q1

REPORT INFORMATION
  Report Type: Spontaneous
  Country: US (occurrence: US)
  Receive Date: 20141230
  Receipt Date: 20150128
  Transmission Date: 20150720
  Serious: No
  Sender: FDA-Public Use
  Company Number: US-009507513-1110USA03472

PATIENT
  Sex: Male
  Weight: 76.19 kg

DRUGS (2)
  1. PROPECIA [Suspect]
     Active Substance: FINASTERIDE
     Indication: ANDROGENETIC ALOPECIA
     Dosage: 1 MG, UNK
     Route: 048
     Dates: start: 1998, end: 200907
  2. FINASTERIDE. [Suspect]
     Active Substance: FINASTERIDE
     Indication: ANDROGENETIC ALOPECIA
     Dosage: 1.25 MG, UNK
     Route: 048
     Dates: start: 200907

REACTIONS (29)
  - Candida infection [Recovered/Resolved]
  - Bacterial infection [Unknown]
  - Dehydroepiandrosterone decreased [Unknown]
  - Peyronie^s disease [Unknown]
  - Anxiety [Unknown]
  - Skin lesion [Unknown]
  - Temporomandibular joint syndrome [Unknown]
  - Nodule [Unknown]
  - Blood testosterone decreased [Unknown]
  - Chest pain [Unknown]
  - Ejaculation failure [Unknown]
  - Loss of libido [Unknown]
  - Wrong technique in drug usage process [Unknown]
  - Cognitive disorder [Unknown]
  - Gastrooesophageal reflux disease [Unknown]
  - Gastric disorder [Unknown]
  - Testicular failure [Unknown]
  - Ejaculation disorder [Unknown]
  - Hyperlipidaemia [Unknown]
  - Androgen deficiency [Unknown]
  - Hypoinsulinaemia [Unknown]
  - Diarrhoea [Unknown]
  - Sexual dysfunction [Unknown]
  - Erectile dysfunction [Unknown]
  - Viral upper respiratory tract infection [Unknown]
  - Fatigue [Unknown]
  - Haematochezia [Unknown]
  - Peripheral coldness [Unknown]
  - Depression [Not Recovered/Not Resolved]

NARRATIVE: CASE EVENT DATE: 2001
